FAERS Safety Report 6340534-6 (Version None)
Quarter: 2009Q3

REPORT INFORMATION
  Report Type: 
  Country: None (occurrence: None)
  Receive Date: 20090904
  Receipt Date: 20090901
  Transmission Date: 20100115
  Serious: Yes (Life-Threatening, Other)
  Sender: FDA-Public Use
  Company Number: GB-JNJFOC-20090304008

PATIENT
  Sex: Female

DRUGS (3)
  1. RISPERDAL CONSTA [Suspect]
     Route: 030
  2. RISPERDAL CONSTA [Suspect]
     Indication: SCHIZOPHRENIA
     Route: 030
  3. PROCYCLIDINE HYDROCHLORIDE 2MG TAB [Concomitant]

REACTIONS (4)
  - DYSPHAGIA [None]
  - EXTRAPYRAMIDAL DISORDER [None]
  - HYPOKINESIA [None]
  - WEIGHT DECREASED [None]
